FAERS Safety Report 5622559-9 (Version None)
Quarter: 2008Q1

REPORT INFORMATION
  Report Type: 
  Country: None (occurrence: None)
  Receive Date: 20080114
  Receipt Date: 20071023
  Transmission Date: 20080703
  Serious: Yes (Other)
  Sender: FDA-Public Use
  Company Number: A03200706151

PATIENT
  Age: 77 Year

DRUGS (3)
  1. PLAVIX [Suspect]
     Indication: STENT PLACEMENT
     Dosage: ORAL
     Route: 048
  2. REOPRO [Suspect]
     Dosage: INTRAVENOUS NOS
     Route: 042
  3. ACETYLSALICYLIC ACID SRT [Suspect]
     Indication: STENT PLACEMENT

REACTIONS (1)
  - UPPER GASTROINTESTINAL HAEMORRHAGE [None]
